FAERS Safety Report 5117503-7 (Version None)
Quarter: 2006Q3

REPORT INFORMATION
  Report Type: 
  Country: None (occurrence: None)
  Receive Date: 20060926
  Receipt Date: 20060906
  Transmission Date: 20061208
  Serious: Yes (Hospitalization)
  Sender: FDA-Public Use
  Company Number: US200601005480

PATIENT
  Age: 41 Year
  Sex: Male
  Weight: 107 kg

DRUGS (1)
  1. B4Z-US-X020 A RANDOMIZED PLACEBO-CONTROL(ATOMOXETINE HYDROCHLORIDE) CA [Suspect]
     Indication: ANXIETY DISORDER
     Dosage: 80 MG, DAILY (1/D), ORAL
     Route: 048
     Dates: start: 20051117, end: 20060126

REACTIONS (1)
  - MYOCARDIAL INFARCTION [None]
